FAERS Safety Report 6590931-9 (Version None)
Quarter: 2010Q1

REPORT INFORMATION
  Report Type: 
  Country: None (occurrence: None)
  Receive Date: 20100219
  Receipt Date: 20100208
  Transmission Date: 20100710
  Serious: Yes (Hospitalization, Other)
  Sender: FDA-Public Use
  Company Number: US-ELI_LILLY_AND_COMPANY-US201002002015

PATIENT
  Sex: Male
  Weight: 144.22 kg

DRUGS (9)
  1. BYETTA [Suspect]
     Indication: TYPE 2 DIABETES MELLITUS
     Dosage: 10 UG, 2/D
     Dates: start: 20090101
  2. MULTI-VITAMIN [Concomitant]
  3. LISINOPRIL [Concomitant]
     Dosage: 20 MG, DAILY (1/D)
  4. METFORMIN HCL [Concomitant]
     Dosage: 1000 MG, 2/D
  5. NOVOLOG [Concomitant]
     Dosage: 40 U, AS NEEDED
  6. PRAVACHOL [Concomitant]
     Dosage: 40 MG, 2/D
  7. TRILEPTAL [Concomitant]
     Dosage: 600 MG, 2/D
  8. NORTRIPTYLINE HCL [Concomitant]
     Dosage: 10 MG, DAILY (1/D)
  9. PRAVASTATIN [Concomitant]
     Dosage: 80 MG, UNK

REACTIONS (7)
  - CEREBELLAR TUMOUR [None]
  - DIARRHOEA [None]
  - DIZZINESS [None]
  - GAIT DISTURBANCE [None]
  - HEMISENSORY NEGLECT [None]
  - LYMPHOMA [None]
  - VOMITING [None]
